FAERS Safety Report 4693643-1 (Version None)
Quarter: 2005Q2

REPORT INFORMATION
  Report Type: 
  Country: None (occurrence: None)
  Receive Date: 20050617
  Receipt Date: 20050509
  Transmission Date: 20051028
  Serious: Yes (Death, Other)
  Sender: FDA-Public Use
  Company Number: 2005UW07104

PATIENT
  Age: 64 Year
  Sex: Male

DRUGS (13)
  1. CRESTOR [Suspect]
  2. NASONEX [Suspect]
     Dates: start: 20011221
  3. AERIUS [Suspect]
     Route: 048
     Dates: start: 20031114
  4. EZETROL [Suspect]
     Route: 048
     Dates: start: 20040429
  5. LORAZEPAM [Concomitant]
     Route: 048
  6. ENTROPHEN [Concomitant]
     Route: 048
  7. EFFEXOR XR [Concomitant]
  8. VASOTEC [Concomitant]
     Route: 048
  9. WELLBUTRIN [Concomitant]
     Route: 048
  10. PREVACID [Concomitant]
     Route: 048
  11. VITAMIN B-12 [Concomitant]
     Route: 048
  12. TIOTROPIUM BROMIDE [Concomitant]
     Route: 048
  13. NORVASC [Concomitant]
     Route: 048

REACTIONS (2)
  - MYALGIA [None]
  - MYOCARDIAL INFARCTION [None]
